FAERS Safety Report 22129069 (Version 1)
Quarter: 2023Q1

REPORT INFORMATION
  Report Type: Other
  Country: US (occurrence: None)
  Receive Date: 20230323
  Receipt Date: 20230323
  Transmission Date: 20230417
  Serious: No
  Sender: FDA-Public Use
  Company Number: US-ROCHE-3312911

PATIENT
  Age: 46 Year
  Sex: Female
  Weight: 56.296 kg

DRUGS (1)
  1. OCREVUS [Suspect]
     Active Substance: OCRELIZUMAB
     Indication: Relapsing-remitting multiple sclerosis
     Route: 042
     Dates: start: 2021

REACTIONS (2)
  - Off label use [Unknown]
  - Herpes zoster [Not Recovered/Not Resolved]
